FAERS Safety Report 8067059-4 (Version None)
Quarter: 2012Q1

REPORT INFORMATION
  Report Type: 
  Country: None (occurrence: None)
  Receive Date: 20120124
  Receipt Date: 20120119
  Transmission Date: 20120608
  Serious: Yes (Death, Life-Threatening, Hospitalization, Other)
  Sender: FDA-Public Use
  Company Number: JP-ROCHE-1022498

PATIENT
  Sex: Female
  Weight: 49 kg

DRUGS (3)
  1. AVASTIN [Suspect]
     Indication: RECTAL CANCER RECURRENT
     Route: 041
     Dates: start: 20111117, end: 20111117
  2. IRINOTECAN HCL [Suspect]
     Indication: RECTAL CANCER RECURRENT
     Route: 041
     Dates: start: 20111117, end: 20111117
  3. XELODA [Suspect]
     Indication: RECTAL CANCER RECURRENT
     Route: 048
     Dates: start: 20111117, end: 20111124

REACTIONS (8)
  - SUBILEUS [None]
  - DIARRHOEA [None]
  - RENAL IMPAIRMENT [None]
  - BLOOD GLUCOSE INCREASED [None]
  - ENTEROCOLITIS [None]
  - MALAISE [None]
  - VOMITING [None]
  - ASPHYXIA [None]
